FAERS Safety Report 15277182 (Version 3)
Quarter: 2018Q3

REPORT INFORMATION
  Report Type: Report from Study
  Country: US (occurrence: US)
  Receive Date: 20180814
  Receipt Date: 20180924
  Transmission Date: 20181010
  Serious: Yes (Hospitalization, Other)
  Sender: FDA-Public Use
  Company Number: US-GILEAD-2018-0351499

PATIENT
  Age: 69 Year
  Sex: Female

DRUGS (6)
  1. IDELALISIB [Suspect]
     Active Substance: IDELALISIB
     Indication: B-CELL LYMPHOMA
     Dosage: 150 MG, BID
     Route: 048
     Dates: start: 20180712, end: 20180805
  2. IDELALISIB [Suspect]
     Active Substance: IDELALISIB
     Dosage: UNK UNK, BID
     Route: 048
     Dates: start: 20180905
  3. DECADRON [Suspect]
     Active Substance: DEXAMETHASONE
     Indication: NEOPLASM MALIGNANT
     Dosage: 20MG BY MOUTH EVERY DAY
     Route: 065
  4. CEPHALEXIN                         /00145501/ [Suspect]
     Active Substance: CEPHALEXIN
     Indication: INFECTION
     Dosage: NOT PROVIDED BY MOUTH FOUR TIMES DAILY
     Route: 048
     Dates: end: 20180716
  5. CLINDAMYCIN. [Suspect]
     Active Substance: CLINDAMYCIN
     Indication: INFECTION
     Dosage: NOT PROVIDED, CAPSULE BY MOUTH
     Route: 048
     Dates: start: 20180717
  6. PREDNISONE. [Suspect]
     Active Substance: PREDNISONE
     Indication: NEOPLASM MALIGNANT
     Dosage: 5MG BY MOUTH DAILY TAPERING DOSE
     Route: 048

REACTIONS (18)
  - Feeling abnormal [Not Recovered/Not Resolved]
  - Skin infection [Not Recovered/Not Resolved]
  - Peripheral swelling [Not Recovered/Not Resolved]
  - Sepsis [Recovering/Resolving]
  - Abdominal pain [Recovering/Resolving]
  - Flatulence [Recovering/Resolving]
  - Proctalgia [Recovering/Resolving]
  - Muscular weakness [Recovering/Resolving]
  - Diverticulitis [Recovering/Resolving]
  - Irritability [Not Recovered/Not Resolved]
  - Fall [Recovering/Resolving]
  - Asthenia [Recovering/Resolving]
  - Toxoplasmosis [Recovering/Resolving]
  - Swelling face [Not Recovered/Not Resolved]
  - Diarrhoea [Recovering/Resolving]
  - Cellulitis [Recovering/Resolving]
  - Neutropenia [Recovering/Resolving]
  - Walking aid user [Recovering/Resolving]

NARRATIVE: CASE EVENT DATE: 201807
